FAERS Safety Report 5468324-7 (Version None)
Quarter: 2007Q3

REPORT INFORMATION
  Report Type: 
  Country: None (occurrence: None)
  Receive Date: 20070926
  Receipt Date: 20070920
  Transmission Date: 20080115
  Serious: Yes (Other)
  Sender: FDA-Public Use
  Company Number: A0679704A

PATIENT
  Age: 61 Year
  Sex: Female
  Weight: 89.1 kg

DRUGS (10)
  1. COREG CR [Suspect]
     Indication: HYPERTENSION
     Dosage: 20MG PER DAY
     Route: 048
     Dates: start: 20070501
  2. METFORMIN [Concomitant]
     Dosage: 1000U TWICE PER DAY
  3. ACTOS [Concomitant]
     Dosage: 30U AT NIGHT
  4. GLIPIZIDE [Concomitant]
     Dosage: 10U PER DAY
  5. LISINOPRIL [Concomitant]
  6. POTASSIUM CHLORIDE [Concomitant]
     Dosage: 30U PER DAY
  7. BACLOFEN [Concomitant]
  8. PROZAC [Concomitant]
  9. ASPIRIN [Concomitant]
     Dosage: 81U PER DAY
  10. VYTORIN [Concomitant]

REACTIONS (5)
  - DISORIENTATION [None]
  - HYPOGLYCAEMIA [None]
  - NAUSEA [None]
  - RHINORRHOEA [None]
  - TREMOR [None]
